FAERS Safety Report 9060562 (Version 1)
Quarter: 2013Q1

REPORT INFORMATION
  Report Type: Spontaneous
  Country: DE (occurrence: GB)
  Receive Date: 20130212
  Receipt Date: 20130212
  Transmission Date: 20140127
  Serious: Yes (Other)
  Sender: FDA-Public Use
  Company Number: GB-FRI-1000042563

PATIENT
  Age: 68 Year
  Sex: Female
  Weight: 77 kg

DRUGS (5)
  1. MEMANTINE [Suspect]
     Indication: DEMENTIA ALZHEIMER^S TYPE
     Dosage: 5 MG
     Route: 048
     Dates: start: 20121217, end: 20121221
  2. BENDROFLUMETHIAZIDE [Concomitant]
     Dosage: 2.5 MG
  3. LANSOPRAZOLE [Concomitant]
     Dosage: 30 MG
  4. METFORMIN [Concomitant]
     Dosage: 1500 MG
  5. PROPRANOLOL [Concomitant]
     Dosage: 40 MG

REACTIONS (4)
  - Confusional state [Recovered/Resolved]
  - Agitation [Recovered/Resolved]
  - Balance disorder [Recovered/Resolved]
  - Gait disturbance [Recovered/Resolved]
